FAERS Safety Report 9397454 (Version 1)
Quarter: 2013Q3

REPORT INFORMATION
  Report Type: Spontaneous
  Country: US (occurrence: US)
  Receive Date: 20130712
  Receipt Date: 20130712
  Transmission Date: 20140515
  Serious: Yes (Other)
  Sender: FDA-Public Use
  Company Number: US-PFIZER INC-2013204684

PATIENT
  Age: 47 Year
  Sex: Female
  Weight: 81.6 kg

DRUGS (6)
  1. LYRICA [Suspect]
     Dosage: 450 MG (150MG ONE ORAL CAPSULE IN THE MORNING AND TWO ORAL CAPSULES OF 150MG IN THE EVENING), UNK
     Route: 048
  2. DIAZEPAM [Concomitant]
     Dosage: UNK
  3. BACLOFEN [Concomitant]
     Dosage: UNK
  4. IBUPROFEN [Concomitant]
     Dosage: 800 MG, UNK
  5. PERCOCET [Concomitant]
     Dosage: UNK, 1X/DAY
  6. CYMBALTA [Concomitant]
     Dosage: UNK

REACTIONS (5)
  - Road traffic accident [Unknown]
  - Vitamin D deficiency [Unknown]
  - Dizziness [Unknown]
  - Somnolence [Unknown]
  - Vision blurred [Unknown]
